FAERS Safety Report 25566300 (Version 1)
Quarter: 2025Q3

REPORT INFORMATION
  Report Type: Spontaneous
  Country: US (occurrence: US)
  Receive Date: 20250716
  Receipt Date: 20250716
  Transmission Date: 20251020
  Serious: No
  Sender: BAYER HEALTHCARE PHARMACEUTICALS INC.
  Company Number: US-BAYER-2025A089751

PATIENT
  Sex: Male

DRUGS (1)
  1. NUBEQA [Suspect]
     Active Substance: DAROLUTAMIDE
     Indication: Prostate cancer
     Dates: start: 20250706

REACTIONS (5)
  - Dizziness [None]
  - Nausea [None]
  - Fatigue [None]
  - Headache [None]
  - Product use issue [None]

NARRATIVE: CASE EVENT DATE: 20250706
